FAERS Safety Report 12357169 (Version 1)
Quarter: 2016Q2

REPORT INFORMATION
  Report Type: Report from Study
  Country: AU (occurrence: AU)
  Receive Date: 20160511
  Receipt Date: 20160511
  Transmission Date: 20160815
  Serious: Yes (Other)
  Sender: FDA-Public Use
  Company Number: PHHY2016AU064831

PATIENT
  Sex: Male

DRUGS (1)
  1. COSENTYX [Suspect]
     Active Substance: SECUKINUMAB
     Indication: PSORIASIS
     Dosage: 300 MG, UNK
     Route: 058
     Dates: start: 20150613, end: 20160331

REACTIONS (5)
  - Psoriasis [Recovering/Resolving]
  - Drug ineffective [Unknown]
  - Pyoderma gangrenosum [Recovering/Resolving]
  - Pruritus [Recovering/Resolving]
  - Scratch [Recovering/Resolving]
